FAERS Safety Report 24083757 (Version 2)
Quarter: 2025Q1

REPORT INFORMATION
  Report Type: Report from Study
  Country: US (occurrence: US)
  Receive Date: 20240712
  Receipt Date: 20250113
  Transmission Date: 20250409
  Serious: No
  Sender: ROCHE
  Company Number: US-ROCHE-10000023302

PATIENT
  Age: 60 Year
  Sex: Female

DRUGS (27)
  1. OCREVUS [Suspect]
     Active Substance: OCRELIZUMAB
     Indication: Relapsing-remitting multiple sclerosis
     Dosage: DATES OF TREATMENT: 30/DEC/2021, 14/JAN/2022, 15/JUN/2022, 15/DEC/2022, 06/JUN/2023, 05/JAN/2024.
     Route: 042
     Dates: start: 202201
  2. OCREVUS [Suspect]
     Active Substance: OCRELIZUMAB
     Dosage: THEN 600 MG EVERY 6 MONTHS.
     Route: 042
  3. OCREVUS [Suspect]
     Active Substance: OCRELIZUMAB
     Route: 042
     Dates: start: 20211230
  4. ACRIVASTINE [Suspect]
     Active Substance: ACRIVASTINE
     Indication: Throat irritation
     Route: 048
     Dates: start: 202301
  5. METHOTREXATE [Concomitant]
     Active Substance: METHOTREXATE
     Indication: Rheumatoid arthritis
     Route: 048
     Dates: start: 1991
  6. PFIZER-BIONTECH COVID-19 VACCINE [Concomitant]
     Active Substance: TOZINAMERAN
     Dates: start: 20210304
  7. MODERNA COVID-19 VACCINE [Concomitant]
     Active Substance: ELASOMERAN
     Dates: start: 202108
  8. PROVIGIL [Concomitant]
     Active Substance: MODAFINIL
  9. co-enzyme Q-10 [Concomitant]
  10. BUSPAR [Concomitant]
     Active Substance: BUSPIRONE HYDROCHLORIDE
  11. SYMBICORT [Concomitant]
     Active Substance: BUDESONIDE\FORMOTEROL FUMARATE DIHYDRATE
  12. UBROGEPANT [Concomitant]
     Active Substance: UBROGEPANT
  13. ZANAFLEX [Concomitant]
     Active Substance: TIZANIDINE HYDROCHLORIDE
  14. CRESTOR [Concomitant]
     Active Substance: ROSUVASTATIN CALCIUM
  15. NARCAN [Concomitant]
     Active Substance: NALOXONE HYDROCHLORIDE
  16. MOTRIN [Concomitant]
     Active Substance: IBUPROFEN
  17. NEURONTIN [Concomitant]
     Active Substance: GABAPENTIN
  18. FOLVITE [Concomitant]
     Active Substance: FOLIC ACID
  19. FLONASE [Concomitant]
     Active Substance: FLUTICASONE PROPIONATE
  20. TRIGLIDE [Concomitant]
     Active Substance: FENOFIBRATE
  21. ESTRACE [Concomitant]
     Active Substance: ESTRADIOL
  22. DICLOFENAC SODIUM [Concomitant]
     Active Substance: DICLOFENAC SODIUM
  23. VITAMIN D3 [Concomitant]
     Active Substance: CHOLECALCIFEROL
  24. ZYRTEC [Concomitant]
     Active Substance: CETIRIZINE HYDROCHLORIDE
  25. CELEBREX [Concomitant]
     Active Substance: CELECOXIB
  26. LIPITOR [Concomitant]
     Active Substance: ATORVASTATIN CALCIUM
  27. ALBUTEROL [Concomitant]
     Active Substance: ALBUTEROL

REACTIONS (10)
  - COVID-19 [Not Recovered/Not Resolved]
  - Migraine [Not Recovered/Not Resolved]
  - Fatigue [Not Recovered/Not Resolved]
  - Dizziness [Not Recovered/Not Resolved]
  - Balance disorder [Unknown]
  - Hypoaesthesia [Not Recovered/Not Resolved]
  - Dizziness [Not Recovered/Not Resolved]
  - Throat irritation [Recovered/Resolved]
  - Pain [Unknown]
  - Muscle spasticity [Unknown]

NARRATIVE: CASE EVENT DATE: 20230101
